FAERS Safety Report 5413676-7 (Version None)
Quarter: 2007Q3

REPORT INFORMATION
  Report Type: 
  Country: None (occurrence: None)
  Receive Date: 20070810
  Receipt Date: 20070730
  Transmission Date: 20080115
  Serious: Yes (Hospitalization)
  Sender: FDA-Public Use
  Company Number: TPG2007A00431

PATIENT
  Age: 51 Year
  Sex: Male

DRUGS (8)
  1. PIOGLITAZONE HCL [Suspect]
     Indication: TYPE 2 DIABETES MELLITUS
     Dosage: 15 MG PIOGLITAZONE AND 850 MG METFORMIN PER ORAL
     Route: 048
     Dates: start: 20070111
  2. ATORVASTATIN CALCIUM [Concomitant]
  3. URSO FALK [Concomitant]
  4. BLOPRESS (CANDESARTAN CILEXETIL) [Concomitant]
  5. HEPA-MERZ (ORNITHINE ASPARTATE) [Concomitant]
  6. SERUMLIPIDREDUCING AGENTS (SERUMLIPIDREDUCING AGENTS) [Concomitant]
  7. RENIN-ANGIOTENSIN SYSTEM, AGENTS ACTING ON (RENIN-ANGIOTENSIN SYSTEM, [Concomitant]
  8. ACOMPLIA [Concomitant]

REACTIONS (2)
  - CONDITION AGGRAVATED [None]
  - HEPATIC STEATOSIS [None]
